FAERS Safety Report 19692118 (Version 1)
Quarter: 2021Q3

REPORT INFORMATION
  Report Type: Spontaneous
  Country: FR (occurrence: FR)
  Receive Date: 20210812
  Receipt Date: 20210812
  Transmission Date: 20211014
  Serious: Yes (Hospitalization)
  Sender: FDA-Public Use
  Company Number: FR-TEVA-2021-FR-1940818

PATIENT
  Age: 78 Year
  Sex: Female
  Weight: 67 kg

DRUGS (13)
  1. FUROSEMIDE. [Suspect]
     Active Substance: FUROSEMIDE
     Indication: CARDIAC FAILURE
     Dosage: 125MILLIGRAM
     Route: 048
     Dates: start: 2010, end: 202107
  2. ESOMEPRAZOLE. [Concomitant]
     Active Substance: ESOMEPRAZOLE MAGNESIUM
  3. ENTRESTO [Concomitant]
     Active Substance: SACUBITRIL\VALSARTAN
  4. CHLORHYDRATE DE TRAMADOL [Concomitant]
     Active Substance: TRAMADOL HYDROCHLORIDE
  5. CHLORHYDRATE DE METFORMINE [Suspect]
     Active Substance: METFORMIN HYDROCHLORIDE
     Indication: TYPE 2 DIABETES MELLITUS
     Dosage: 1700MILLIGRAM
     Route: 048
     Dates: end: 202107
  6. PRAVASTATINE SODIQUE [Concomitant]
     Active Substance: PRAVASTATIN SODIUM
  7. FLECAINE [Concomitant]
     Active Substance: FLECAINIDE
  8. ALLOPURINOL. [Concomitant]
     Active Substance: ALLOPURINOL
  9. LINEZOLIDE [Suspect]
     Active Substance: LINEZOLID
     Indication: SINUSITIS
     Dosage: 600MG 2 IN THE MORNING 2 AT NOON 2 IN THE EVENING:UNIT DOSE:6DOSAGEFORM
     Route: 048
     Dates: start: 20210701, end: 202107
  10. CHOLURSO [Concomitant]
     Active Substance: URSODIOL
  11. SPAGULAX [Concomitant]
     Active Substance: HERBALS\PLANTAGO OVATA SEED
  12. BISOPROLOL (FUMARATE ACIDE DE) [Concomitant]
     Active Substance: BISOPROLOL FUMARATE
  13. APIXABAN [Concomitant]
     Active Substance: APIXABAN

REACTIONS (4)
  - Lactic acidosis [Recovering/Resolving]
  - Product prescribing error [Recovering/Resolving]
  - Bicytopenia [Recovering/Resolving]
  - Acute kidney injury [Recovering/Resolving]

NARRATIVE: CASE EVENT DATE: 20210701
